FAERS Safety Report 8907210 (Version 1)
Quarter: 2012Q4

REPORT INFORMATION
  Report Type: 
  Country: US (occurrence: US)
  Receive Date: 20121114
  Receipt Date: 20121114
  Transmission Date: 20130627
  Serious: Yes (Other)
  Sender: FDA-Public Use
  Company Number: US-MERCK-1210USA011308

PATIENT

DRUGS (2)
  1. VORINOSTAT [Suspect]
     Indication: MYCOSIS FUNGOIDES
     Route: 048
  2. PREDNISONE [Suspect]
     Indication: NEOPLASM MALIGNANT

REACTIONS (1)
  - Chronic myeloid leukaemia [Unknown]
